FAERS Safety Report 6101747-1 (Version None)
Quarter: 2009Q1

REPORT INFORMATION
  Report Type: 
  Country: None (occurrence: None)
  Receive Date: 20090304
  Receipt Date: 20090224
  Transmission Date: 20090719
  Serious: Yes (Hospitalization)
  Sender: FDA-Public Use
  Company Number: B0561377A

PATIENT
  Age: 70 Year
  Sex: Female

DRUGS (8)
  1. LAMICTAL [Suspect]
     Indication: DRUG USE FOR UNKNOWN INDICATION
     Route: 048
     Dates: start: 20081215, end: 20090120
  2. MICARDIS [Concomitant]
     Dosage: 80MG PER DAY
     Route: 048
     Dates: start: 20081001, end: 20090123
  3. LODALES [Concomitant]
     Indication: HYPERTENSION
     Dosage: 20MG PER DAY
     Route: 048
     Dates: end: 20090123
  4. EFFEXOR [Concomitant]
     Dosage: 20MG PER DAY
     Route: 048
     Dates: end: 20090123
  5. BROMAZEPAM [Concomitant]
     Route: 048
     Dates: end: 20090123
  6. BONIVA [Concomitant]
     Dosage: 150MG PER DAY
     Route: 048
     Dates: end: 20090123
  7. LANSOPRAZOLE [Concomitant]
     Route: 048
     Dates: end: 20090123
  8. ZYPREXA [Concomitant]
     Route: 065

REACTIONS (16)
  - BLOOD CREATININE INCREASED [None]
  - DERMATITIS EXFOLIATIVE [None]
  - DRUG RASH WITH EOSINOPHILIA AND SYSTEMIC SYMPTOMS [None]
  - EOSINOPHILIA [None]
  - FACE OEDEMA [None]
  - HEPATOCELLULAR INJURY [None]
  - HYPOTENSION [None]
  - LEUKOCYTOSIS [None]
  - LOCALISED OEDEMA [None]
  - LYMPHADENOPATHY [None]
  - OEDEMA PERIPHERAL [None]
  - ORAL HERPES [None]
  - PRURIGO [None]
  - PYREXIA [None]
  - SKIN EXFOLIATION [None]
  - URTICARIA [None]
